FAERS Safety Report 6644315-5 (Version None)
Quarter: 2010Q1

REPORT INFORMATION
  Report Type: 
  Country: None (occurrence: None)
  Receive Date: 20100318
  Receipt Date: 20100318
  Transmission Date: 20100710
  Serious: Yes (Other)
  Sender: FDA-Public Use
  Company Number: None

PATIENT
  Sex: Female
  Weight: 117.9352 kg

DRUGS (2)
  1. METFORMIN HCL [Suspect]
     Dosage: ONE PO BID (~4-6 WKS)
     Route: 048
  2. SPIRONOLACTONE [Concomitant]

REACTIONS (2)
  - ABDOMINAL PAIN [None]
  - PRODUCT SUBSTITUTION ISSUE [None]
